FAERS Safety Report 4867293-8 (Version None)
Quarter: 2005Q4

REPORT INFORMATION
  Report Type: 
  Country: None (occurrence: None)
  Receive Date: 20051227
  Receipt Date: 20051227
  Transmission Date: 20060501
  Serious: No
  Sender: FDA-Public Use
  Company Number: None

PATIENT
  Age: 16 Year
  Sex: Male
  Weight: 68.0396 kg

DRUGS (1)
  1. RETIN-A [Suspect]
     Indication: ACNE

REACTIONS (2)
  - DRY EYE [None]
  - EYE DISORDER [None]
